FAERS Safety Report 7138692-9 (Version None)
Quarter: 2010Q4

REPORT INFORMATION
  Report Type: 
  Country: None (occurrence: None)
  Receive Date: 20101201
  Receipt Date: 20101201
  Transmission Date: 20110411
  Serious: Yes (Hospitalization)
  Sender: FDA-Public Use
  Company Number: None

PATIENT
  Sex: Female

DRUGS (1)
  1. RIVASTIGMINE TARTRATE [Suspect]
     Dosage: TAKE 1 CAPSULE IN THE MORNING AND IN THE EVENING

REACTIONS (3)
  - BLOOD PRESSURE INCREASED [None]
  - HYPERHIDROSIS [None]
  - VOMITING [None]
